FAERS Safety Report 26202464 (Version 1)
Quarter: 2025Q4

REPORT INFORMATION
  Report Type: Report from Study
  Country: US (occurrence: US)
  Receive Date: 20251226
  Receipt Date: 20251226
  Transmission Date: 20260118
  Serious: Yes (Death, Other)
  Sender: ALEXION PHARMACEUTICALS
  Company Number: US-AstraZeneca-CH-00795825A

PATIENT
  Age: 86 Year
  Sex: Male
  Weight: 61.224 kg

DRUGS (9)
  1. OSIMERTINIB [Suspect]
     Active Substance: OSIMERTINIB
     Indication: Lung neoplasm malignant
     Dosage: 80 MILLIGRAM, QD
     Route: 061
     Dates: start: 20240907, end: 202506
  2. TYLENOL [Concomitant]
     Active Substance: ACETAMINOPHEN
     Indication: Pain
     Dosage: 500 MILLIGRAM, Q6H
     Route: 065
  3. CORTIZONE 10 [Concomitant]
     Active Substance: HYDROCORTISONE
     Dosage: APPLY TOPICALLY 2 (TWO) TIMES DAILY.
     Route: 065
  4. MOTRIN [Concomitant]
     Active Substance: IBUPROFEN
     Indication: Pain
     Dosage: 400 MILLIGRAM, Q6H, AS NEEDED FOR PAIN
     Route: 065
  5. KETALAR [Concomitant]
     Active Substance: KETAMINE HYDROCHLORIDE
     Dosage: UNK
     Route: 065
  6. MYCOSTATIN [Concomitant]
     Active Substance: NYSTATIN
     Indication: Dry skin
     Dosage: APPLY TOPICALLY 2 (TWO) TIMES DAILY
     Route: 065
  7. ROXICODONE [Concomitant]
     Active Substance: OXYCODONE HYDROCHLORIDE
     Indication: Pain
     Dosage: TAKE 1 TABLET (5 MG TOTAL) BY MOUTH EVERY 4 (FOUR) HOURS AS NEEDED
     Route: 065
  8. GLYCOLAX [Concomitant]
     Active Substance: POLYETHYLENE GLYCOL 3350
     Dosage: TAKE 240 MLS (17 G TOTAL) BY MOUTH DAILY. DISSOLVE POWDER IN 240 ML WATER
     Route: 065
  9. COMPAZINE [Concomitant]
     Active Substance: PROCHLORPERAZINE MALEATE
     Dosage: 10 MILLIGRAM (TAKE 1 TABLET (10 MG TOTAL) BY MOUTH EVERY 6 (SIX) HOURS AS NEEDED)
     Route: 065

REACTIONS (28)
  - Malignant pleural effusion [Unknown]
  - Pneumothorax [Unknown]
  - Malignant neoplasm progression [Unknown]
  - Death [Fatal]
  - Adrenal mass [Unknown]
  - Cachexia [Unknown]
  - Nausea [Not Recovered/Not Resolved]
  - Pruritus [Not Recovered/Not Resolved]
  - Dry skin [Not Recovered/Not Resolved]
  - Blood albumin abnormal [Unknown]
  - Aspartate aminotransferase decreased [Unknown]
  - Dyspnoea [Unknown]
  - Gastrooesophageal reflux disease [Unknown]
  - Candida infection [Unknown]
  - Rash [Unknown]
  - Respiration abnormal [Unknown]
  - Frustration tolerance decreased [Unknown]
  - Cancer pain [Unknown]
  - Asthenia [Unknown]
  - Appetite disorder [Unknown]
  - Chest pain [Unknown]
  - Lung disorder [Unknown]
  - Lymphadenopathy [Unknown]
  - Device related infection [Unknown]
  - Constipation [Unknown]
  - Anxiety [Unknown]
  - Insomnia [Unknown]
  - Abdominal pain [Unknown]

NARRATIVE: CASE EVENT DATE: 20250227
